FAERS Safety Report 13555832 (Version 2)
Quarter: 2017Q2

REPORT INFORMATION
  Report Type: Spontaneous
  Country: CA (occurrence: CA)
  Receive Date: 20170517
  Receipt Date: 20170602
  Transmission Date: 20170830
  Serious: Yes (Other)
  Sender: FDA-Public Use
  Company Number: CA-TAKEDA-2017TUS010920

PATIENT
  Age: 50 Year
  Sex: Female

DRUGS (3)
  1. TRINTELLIX [Suspect]
     Active Substance: VORTIOXETINE HYDROBROMIDE
     Indication: MAJOR DEPRESSION
     Dosage: 10 MG, QD
     Route: 065
     Dates: start: 20170412
  2. TRAZODONE [Concomitant]
     Active Substance: TRAZODONE HYDROCHLORIDE
     Indication: PRODUCT USED FOR UNKNOWN INDICATION
     Dosage: 100 MG, UNK
     Route: 065
  3. MAXALT [Concomitant]
     Active Substance: RIZATRIPTAN BENZOATE
     Indication: MIGRAINE
     Dosage: UNK
     Route: 065

REACTIONS (7)
  - Loss of consciousness [Recovered/Resolved]
  - Serotonin syndrome [Unknown]
  - Contraindicated product administered [Unknown]
  - Blunted affect [Unknown]
  - Vomiting [Unknown]
  - Feeling abnormal [Unknown]
  - Road traffic accident [Unknown]

NARRATIVE: CASE EVENT DATE: 20170421
